FAERS Safety Report 7266375-3 (Version None)
Quarter: 2011Q1

REPORT INFORMATION
  Report Type: 
  Country: None (occurrence: None)
  Receive Date: 20110120
  Receipt Date: 20110111
  Transmission Date: 20110831
  Serious: Yes (Hospitalization)
  Sender: FDA-Public Use
  Company Number: VAL_00510_2011

PATIENT
  Age: 58 Year
  Sex: Female

DRUGS (8)
  1. ROCALTROL [Suspect]
     Indication: POST PROCEDURAL HYPOTHYROIDISM
     Dosage: 0.5 UG QD, ORAL, (DOSE WAS MODIFIED ORAL)
     Route: 048
     Dates: start: 20100422, end: 20100426
  2. ROCALTROL [Suspect]
     Indication: POST PROCEDURAL HYPOTHYROIDISM
     Dosage: 0.5 UG QD, ORAL, (DOSE WAS MODIFIED ORAL)
     Route: 048
     Dates: start: 20100501
  3. NORVASC [Concomitant]
  4. PROGRAF [Concomitant]
  5. PREDNISONE [Concomitant]
  6. CALCIUM SANDOZ-CALCIUM CARBONATE/CALCIUM GLUBIONATE/CALCIUM GLUCONATE/ [Suspect]
     Indication: POST PROCEDURAL HYPOTHYROIDISM
     Dosage: 4500 MG QD, ORAL (DOSE WAS MODIFIED ORAL)
     Route: 048
     Dates: start: 20100422, end: 20100426
  7. CALCIUM SANDOZ-CALCIUM CARBONATE/CALCIUM GLUBIONATE/CALCIUM GLUCONATE/ [Suspect]
     Indication: POST PROCEDURAL HYPOTHYROIDISM
     Dosage: 4500 MG QD, ORAL (DOSE WAS MODIFIED ORAL)
     Route: 048
     Dates: start: 20100501
  8. CELLCEPT [Concomitant]

REACTIONS (11)
  - PARAESTHESIA [None]
  - ABDOMINAL PAIN [None]
  - BLOOD PRESSURE INCREASED [None]
  - DIARRHOEA [None]
  - DRUG INTERACTION [None]
  - VOMITING [None]
  - DISORIENTATION [None]
  - BLOOD CREATINE INCREASED [None]
  - HYPERCALCAEMIA [None]
  - NAUSEA [None]
  - CONFUSIONAL STATE [None]
